FAERS Safety Report 17806076 (Version 1)
Quarter: 2020Q2

REPORT INFORMATION
  Report Type: Spontaneous
  Country: DE (occurrence: DE)
  Receive Date: 20200520
  Receipt Date: 20200520
  Transmission Date: 20200714
  Serious: Yes (Other)
  Sender: FDA-Public Use
  Company Number: DE-SHIELD TX (UK) LTD-DE-STX-20-NOR-0011

PATIENT
  Age: 20 Year
  Sex: Female
  Weight: 50.3 kg

DRUGS (4)
  1. RESOLON [Concomitant]
     Indication: PRODUCT USED FOR UNKNOWN INDICATION
     Dates: start: 201903
  2. XIFAXAN [Suspect]
     Active Substance: RIFAXIMIN
     Indication: OVERGROWTH BACTERIAL
     Route: 048
     Dates: start: 20200313, end: 20200331
  3. FERACCRU [Suspect]
     Active Substance: FERRIC MALTOL
     Indication: IRON DEFICIENCY
     Route: 048
     Dates: start: 20200320, end: 20200415
  4. DEKRISTOL [Concomitant]
     Active Substance: CHOLECALCIFEROL
     Indication: PRODUCT USED FOR UNKNOWN INDICATION
     Dates: start: 20190312

REACTIONS (5)
  - Weight increased [Unknown]
  - Joint swelling [Unknown]
  - Off label use [Unknown]
  - Localised oedema [Unknown]
  - Therapeutic product effect incomplete [Unknown]
